FAERS Safety Report 12750685 (Version 1)
Quarter: 2016Q3

REPORT INFORMATION
  Report Type: Spontaneous
  Country: US (occurrence: US)
  Receive Date: 20160916
  Receipt Date: 20160916
  Transmission Date: 20161109
  Serious: Yes (Other)
  Sender: FDA-Public Use
  Company Number: US-SA-2016SA167544

PATIENT
  Age: 49 Year
  Sex: Female

DRUGS (1)
  1. LANTUS [Suspect]
     Active Substance: INSULIN GLARGINE
     Indication: TYPE 1 DIABETES MELLITUS
     Dosage: TREATMENT START DATE: IN 1990^S DOSE:90 UNIT(S)
     Route: 065

REACTIONS (7)
  - Language disorder [Unknown]
  - Visual acuity reduced [Unknown]
  - Product use issue [Unknown]
  - Activities of daily living impaired [Unknown]
  - Retinopathy [Unknown]
  - Cerebrovascular accident [Unknown]
  - Gait disturbance [Unknown]

NARRATIVE: CASE EVENT DATE: 2013
